APPROVED DRUG PRODUCT: CARBIDOPA AND LEVODOPA
Active Ingredient: CARBIDOPA; LEVODOPA
Strength: 25MG;100MG
Dosage Form/Route: TABLET;ORAL
Application: A215999 | Product #002
Applicant: ZYDUS PHARMACEUTICALS USA INC
Approved: Apr 4, 2023 | RLD: No | RS: No | Type: DISCN